FAERS Safety Report 25858170 (Version 1)
Quarter: 2025Q3

REPORT INFORMATION
  Report Type: Spontaneous
  Country: US (occurrence: US)
  Receive Date: 20250929
  Receipt Date: 20250929
  Transmission Date: 20251020
  Serious: Yes (Hospitalization, Other)
  Sender: AUROBINDO
  Company Number: US-AUROBINDO-AUR-APL-2025-047937

PATIENT
  Age: 57 Year
  Sex: Male

DRUGS (2)
  1. SULFAMETHOXAZOLE\TRIMETHOPRIM [Suspect]
     Active Substance: SULFAMETHOXAZOLE\TRIMETHOPRIM
     Indication: Arthropod bite
     Route: 065
  2. DOXYCYCLINE [Concomitant]
     Active Substance: DOXYCYCLINE
     Indication: Rash erythematous
     Dosage: 100 MILLIGRAM, TWO TIMES A DAY (FOR 10 DAYS)
     Route: 065

REACTIONS (2)
  - Thrombocytopenia [Unknown]
  - Mucocutaneous haemorrhage [Unknown]
